FAERS Safety Report 8168715-X (Version None)
Quarter: 2012Q1

REPORT INFORMATION
  Report Type: 
  Country: None (occurrence: None)
  Receive Date: 20120103
  Receipt Date: 20111116
  Transmission Date: 20120608
  Serious: No
  Sender: FDA-Public Use
  Company Number: AE-2011-003600

PATIENT
  Age: 48 Year
  Sex: Female
  Weight: 99.7913 kg

DRUGS (8)
  1. TRAZODONE HCL [Concomitant]
  2. VERAPAMIL [Concomitant]
  3. VENLAFAXINE [Concomitant]
  4. INCIVEK [Suspect]
     Dosage: 2250 MG (750 MG, 1 IN 8 HR), ORAL
     Route: 048
     Dates: start: 20111030
  5. PEGASYS [Concomitant]
  6. LISINOPRIL [Concomitant]
  7. RIBAVIRIN [Concomitant]
  8. PROPRANOLOL [Concomitant]

REACTIONS (4)
  - ANAEMIA [None]
  - NAUSEA [None]
  - PANIC ATTACK [None]
  - DRUG DOSE OMISSION [None]
